FAERS Safety Report 15247435 (Version 1)
Quarter: 2018Q3

REPORT INFORMATION
  Report Type: Spontaneous
  Country: US (occurrence: US)
  Receive Date: 20180807
  Receipt Date: 20180807
  Transmission Date: 20181010
  Serious: No
  Sender: FDA-Public Use
  Company Number: US-LUPIN PHARMACEUTICALS INC.-2018-03302

PATIENT

DRUGS (1)
  1. LEVETIRACETAM EXTENDED RELEASE TABLET [Suspect]
     Active Substance: LEVETIRACETAM
     Dosage: UNK
     Route: 065

REACTIONS (1)
  - Medication residue present [Unknown]
